FAERS Safety Report 8480214-4 (Version None)
Quarter: 2012Q2

REPORT INFORMATION
  Report Type: 
  Country: None (occurrence: None)
  Receive Date: 20120629
  Receipt Date: 20120620
  Transmission Date: 20120825
  Serious: Yes (Other)
  Sender: FDA-Public Use
  Company Number: FR-ASTRAZENECA-2012SE36555

PATIENT
  Sex: Female
  Weight: 50 kg

DRUGS (7)
  1. SEROQUEL [Suspect]
     Indication: BIPOLAR I DISORDER
     Route: 048
     Dates: start: 20120515, end: 20120515
  2. SEROQUEL [Suspect]
     Route: 048
     Dates: start: 20120520, end: 20120520
  3. ALPRAZOLAM [Concomitant]
  4. SEROQUEL [Suspect]
     Route: 048
     Dates: start: 20120522
  5. SEROQUEL [Suspect]
     Route: 048
     Dates: start: 20120518, end: 20120521
  6. ZOLPIDEM [Concomitant]
  7. SEROQUEL [Suspect]
     Route: 048
     Dates: start: 20120517, end: 20120517

REACTIONS (1)
  - GASTROOESOPHAGEAL REFLUX DISEASE [None]
